FAERS Safety Report 16926436 (Version 1)
Quarter: 2019Q4

REPORT INFORMATION
  Report Type: Spontaneous
  Country: US (occurrence: US)
  Receive Date: 20191016
  Receipt Date: 20191016
  Transmission Date: 20200122
  Serious: No
  Sender: FDA-Public Use
  Company Number: US-SA-2019SA276676

PATIENT
  Age: 52 Year
  Sex: Female

DRUGS (1)
  1. DUPIXENT [Suspect]
     Active Substance: DUPILUMAB
     Indication: DERMATITIS ATOPIC
     Dosage: 300 MG, QOW
     Route: 058
     Dates: start: 20180424

REACTIONS (4)
  - Administration site inflammation [Recovered/Resolved]
  - Administration site rash [Recovered/Resolved]
  - Contraindicated product administered [Recovered/Resolved]
  - Rash papular [Recovered/Resolved]
